FAERS Safety Report 5059947-8 (Version None)
Quarter: 2006Q3

REPORT INFORMATION
  Report Type: 
  Country: None (occurrence: None)
  Receive Date: 20060719
  Receipt Date: 20060705
  Transmission Date: 20061208
  Serious: Yes (Hospitalization)
  Sender: FDA-Public Use
  Company Number: S06-FRA-02697-01

PATIENT
  Age: 47 Year
  Sex: Female

DRUGS (9)
  1. CITALOPRAM HYDROBROMIDE [Suspect]
     Dosage: 1 UNITS QD PO
     Route: 048
     Dates: start: 20040115
  2. SINEMET [Suspect]
     Dosage: 100 MG TID PO
     Route: 048
     Dates: start: 20050426, end: 20051026
  3. SINEMET [Suspect]
     Dosage: 400 MG TID PO
     Route: 048
     Dates: start: 20051027, end: 20060530
  4. REQUIP [Suspect]
     Dosage: 4 MG TID PO
     Route: 048
     Dates: start: 20050208, end: 20050425
  5. REQUIP [Suspect]
     Dosage: 5 MG TID PO
     Route: 048
     Dates: start: 20050426, end: 20060108
  6. REQUIP [Suspect]
     Dosage: 5 MG QID PO
     Route: 048
     Dates: start: 20060109, end: 20060530
  7. REQUIP [Suspect]
     Dosage: 5 MG TID PO
     Route: 048
     Dates: start: 20060531
  8. REQUIP [Suspect]
     Dosage: 2.5 MG BID PO
     Route: 048
     Dates: start: 20060531
  9. ZOLPIDEM TARTRATE [Suspect]
     Dosage: 10 MG QD PO
     Route: 048
     Dates: start: 20040115

REACTIONS (2)
  - NEUTROPENIA [None]
  - WHITE BLOOD CELL COUNT INCREASED [None]
